FAERS Safety Report 8164415-0 (Version None)
Quarter: 2012Q1

REPORT INFORMATION
  Report Type: 
  Country: None (occurrence: None)
  Receive Date: 20120224
  Receipt Date: 20120215
  Transmission Date: 20120608
  Serious: Yes (Other)
  Sender: FDA-Public Use
  Company Number: US-ASTRAZENECA-2011SE01538

PATIENT
  Age: 44 Year
  Sex: Female

DRUGS (1)
  1. ATACAND [Suspect]
     Route: 048

REACTIONS (6)
  - ROAD TRAFFIC ACCIDENT [None]
  - HEART INJURY [None]
  - MYOCARDIAL INFARCTION [None]
  - SKELETAL INJURY [None]
  - BRAIN INJURY [None]
  - TRAUMATIC LUNG INJURY [None]
